FAERS Safety Report 25389773 (Version 1)
Quarter: 2025Q2

REPORT INFORMATION
  Report Type: Spontaneous
  Country: US (occurrence: US)
  Receive Date: 20250603
  Receipt Date: 20250603
  Transmission Date: 20250717
  Serious: Yes (Hospitalization)
  Sender: SANOFI AVENTIS
  Company Number: US-SA-2025SA155598

PATIENT
  Sex: Female

DRUGS (16)
  1. DUPIXENT [Suspect]
     Active Substance: DUPILUMAB
     Indication: Seasonal allergy
     Dosage: 300 MG, QOW
     Route: 058
  2. TYLENOL [Concomitant]
     Active Substance: ACETAMINOPHEN
  3. ALPRAZOLAM [Concomitant]
     Active Substance: ALPRAZOLAM
  4. ATORVASTATIN [Concomitant]
     Active Substance: ATORVASTATIN
  5. ELIQUIS [Concomitant]
     Active Substance: APIXABAN
  6. ESTRADIOL [Concomitant]
     Active Substance: ESTRADIOL
  7. GABAPENTIN [Concomitant]
     Active Substance: GABAPENTIN
  8. IBUPROFEN [Concomitant]
     Active Substance: IBUPROFEN
  9. IPRATROPIUM [Concomitant]
     Active Substance: IPRATROPIUM
  10. LISINOPRIL [Concomitant]
     Active Substance: LISINOPRIL
  11. MONTELUKAST [Concomitant]
     Active Substance: MONTELUKAST
  12. OMEPRAZOLE [Concomitant]
     Active Substance: OMEPRAZOLE
  13. QUETIAPINE FUMARATE [Concomitant]
     Active Substance: QUETIAPINE FUMARATE
  14. VENLAFAXINE [Concomitant]
     Active Substance: VENLAFAXINE HYDROCHLORIDE
  15. VENTOLIN HFA [Concomitant]
     Active Substance: ALBUTEROL SULFATE
  16. SPIRIVA RESPIMAT [Concomitant]
     Active Substance: TIOTROPIUM BROMIDE

REACTIONS (5)
  - Dyspnoea [Unknown]
  - Infection [Unknown]
  - Wheezing [Unknown]
  - Dry eye [Unknown]
  - Product use in unapproved indication [Unknown]
